FAERS Safety Report 25407916 (Version 1)
Quarter: 2025Q2

REPORT INFORMATION
  Report Type: Report from Study
  Country: US (occurrence: US)
  Receive Date: 20250606
  Receipt Date: 20250606
  Transmission Date: 20250716
  Serious: Yes (Other)
  Sender: ABBVIE
  Company Number: US-ABBVIE-6202218

PATIENT
  Age: 60 Year
  Sex: Female
  Weight: 79 kg

DRUGS (12)
  1. HUMIRA [Suspect]
     Active Substance: ADALIMUMAB
     Indication: Crohn^s disease
     Dosage: FORM STRENGTH: 40 MILLIGRAM
     Route: 058
     Dates: start: 20240910
  2. IMITREX [Concomitant]
     Active Substance: SUMATRIPTAN SUCCINATE
     Indication: Headache
  3. ZYRTEC [Concomitant]
     Active Substance: CETIRIZINE HYDROCHLORIDE
     Indication: Seasonal allergy
  4. VITAMIN D [Concomitant]
     Active Substance: VITAMIN D NOS
     Indication: Osteoporosis
  5. MESALAMINE [Concomitant]
     Active Substance: MESALAMINE
     Indication: Crohn^s disease
  6. Hemarate [Concomitant]
     Indication: Iron deficiency
  7. MUCINEX [Concomitant]
     Active Substance: GUAIFENESIN
     Indication: Seasonal allergy
  8. RAPAFLO [Concomitant]
     Active Substance: SILODOSIN
     Indication: Nephropathy
  9. BUDESONIDE [Concomitant]
     Active Substance: BUDESONIDE
     Indication: Asthma
  10. PREDNISONE [Concomitant]
     Active Substance: PREDNISONE
     Indication: Fibromyalgia
  11. MACROBID [Concomitant]
     Active Substance: NITROFURANTOIN\NITROFURANTOIN MONOHYDRATE
     Indication: Nephropathy
  12. NEXIUM [Concomitant]
     Active Substance: ESOMEPRAZOLE MAGNESIUM
     Indication: Barrett^s oesophagus

REACTIONS (4)
  - Coronary artery occlusion [Not Recovered/Not Resolved]
  - Heart rate increased [Unknown]
  - Joint stiffness [Not Recovered/Not Resolved]
  - Arthralgia [Not Recovered/Not Resolved]

NARRATIVE: CASE EVENT DATE: 20250401
